FAERS Safety Report 22328098 (Version 2)
Quarter: 2023Q2

REPORT INFORMATION
  Report Type: Spontaneous
  Country: US (occurrence: US)
  Receive Date: 20230516
  Receipt Date: 20230526
  Transmission Date: 20230722
  Serious: Yes (Hospitalization)
  Sender: FDA-Public Use
  Company Number: US-MALLINCKRODT-MNK202301662

PATIENT
  Age: 44 Year
  Sex: Female
  Weight: 76 kg

DRUGS (2)
  1. UVADEX [Suspect]
     Active Substance: METHOXSALEN
     Indication: Graft versus host disease
     Dosage: AVERAGE DOSE OF 2.2 AT EACH ECP, TWICE A MONTH
     Route: 050
     Dates: start: 20230209
  2. HEPARIN [Concomitant]
     Active Substance: HEPARIN SODIUM
     Indication: Anticoagulant therapy
     Dosage: 10,000 UNITS (U) IN 500 MILLILITERS (ML) NACI 10:1

REACTIONS (5)
  - Chest pain [Unknown]
  - Dyspnoea [Unknown]
  - Cough [Unknown]
  - Nausea [Unknown]
  - Product use in unapproved indication [Unknown]

NARRATIVE: CASE EVENT DATE: 20230209
